FAERS Safety Report 25433950 (Version 2)
Quarter: 2025Q3

REPORT INFORMATION
  Report Type: Spontaneous
  Country: GB (occurrence: GB)
  Receive Date: 20250613
  Receipt Date: 20250704
  Transmission Date: 20251020
  Serious: Yes (Congenital Anomaly, Other)
  Sender: AUROBINDO
  Company Number: GB-MHRA-MED-202505300541401560-HRWPS

PATIENT
  Sex: Male
  Weight: 5 kg

DRUGS (3)
  1. CITALOPRAM [Suspect]
     Active Substance: CITALOPRAM
     Indication: Product used for unknown indication
     Route: 065
     Dates: start: 202408, end: 202409
  2. CITALOPRAM [Suspect]
     Active Substance: CITALOPRAM
     Route: 065
     Dates: start: 20250423, end: 20250423
  3. FOLIC ACID [Concomitant]
     Active Substance: FOLIC ACID
     Indication: Vitamin supplementation
     Route: 065

REACTIONS (3)
  - Pulmonary valve stenosis [Not Recovered/Not Resolved]
  - Congenital hypothyroidism [Not Recovered/Not Resolved]
  - Foetal exposure during pregnancy [Unknown]

NARRATIVE: CASE EVENT DATE: 20250423
